FAERS Safety Report 6555892-7 (Version None)
Quarter: 2010Q1

REPORT INFORMATION
  Report Type: 
  Country: None (occurrence: None)
  Receive Date: 20100125
  Receipt Date: 20100118
  Transmission Date: 20100710
  Serious: Yes (Hospitalization)
  Sender: FDA-Public Use
  Company Number: 2009-201116-NL

PATIENT
  Age: 49 Year
  Sex: Male
  Weight: 70.5 kg

DRUGS (10)
  1. ROCURONIUM BROMIDE [Suspect]
     Indication: ENDOTRACHEAL INTUBATION
     Dosage: 40 MG;ONCE;INBO ;INDRP
     Route: 041
     Dates: start: 20090708, end: 20090708
  2. ROCURONIUM BROMIDE [Suspect]
     Indication: MAINTENANCE OF ANAESTHESIA
     Dosage: 40 MG;ONCE;INBO ;INDRP
     Route: 041
     Dates: start: 20090708, end: 20090708
  3. ROCURONIUM BROMIDE [Suspect]
     Indication: ENDOTRACHEAL INTUBATION
     Dosage: 40 MG;ONCE;INBO ;INDRP
     Route: 041
     Dates: start: 20090708, end: 20090708
  4. ROCURONIUM BROMIDE [Suspect]
     Indication: MAINTENANCE OF ANAESTHESIA
     Dosage: 40 MG;ONCE;INBO ;INDRP
     Route: 041
     Dates: start: 20090708, end: 20090708
  5. FENTANYL CITRATE [Concomitant]
  6. PROPOFOL [Concomitant]
  7. ATROPINE [Concomitant]
  8. VAGOSTIGMIN [Concomitant]
  9. ROPIVACAINE HYDROCHLORIDE [Concomitant]
  10. MORPHINE HYDROCHLORIDE [Concomitant]

REACTIONS (6)
  - ABDOMINAL ABSCESS [None]
  - BACTERAEMIA [None]
  - PNEUMONIA ASPIRATION [None]
  - POST PROCEDURAL COMPLICATION [None]
  - SLEEP APNOEA SYNDROME [None]
  - SNORING [None]
